FAERS Safety Report 8049077-5 (Version None)
Quarter: 2011Q4

REPORT INFORMATION
  Report Type: 
  Country: None (occurrence: None)
  Receive Date: 20111209
  Receipt Date: 20110907
  Transmission Date: 20120403
  Serious: No
  Sender: FDA-Public Use
  Company Number: 2011SPP042347

PATIENT
  Age: 69 Year
  Sex: Female

DRUGS (9)
  1. PEG-INTRON [Suspect]
     Indication: PRODUCT USED FOR UNKNOWN INDICATION
  2. VICTRELIS [Suspect]
     Indication: HEPATITIS C
     Dosage: 800 MG; TID; PO
     Route: 048
     Dates: start: 20110829, end: 20110905
  3. MYFORTIC [Concomitant]
  4. NEORAL [Concomitant]
  5. CALCIUM [Concomitant]
  6. RIBAVIRIN [Suspect]
     Indication: PRODUCT USED FOR UNKNOWN INDICATION
  7. PEPCID [Concomitant]
  8. LOPRESSOR [Concomitant]
  9. ACTIGALL [Concomitant]

REACTIONS (3)
  - STOMATITIS [None]
  - NAUSEA [None]
  - FATIGUE [None]
